FAERS Safety Report 5841340-9 (Version None)
Quarter: 2008Q3

REPORT INFORMATION
  Report Type: 
  Country: None (occurrence: None)
  Receive Date: 20080731
  Receipt Date: 20080522
  Transmission Date: 20090109
  Serious: No
  Sender: FDA-Public Use
  Company Number: US200805002901

PATIENT
  Age: 73 Year
  Sex: Female

DRUGS (3)
  1. BYETTA [Suspect]
     Dosage: 5 UG, SUBCUTANEOUS; 5 UG, SUBCUTANEOUS
     Route: 058
  2. GLUCOPHAGE /USA/ (METFORMIN HYDROCHLORIDE) [Concomitant]
  3. GLUCOTROL [Concomitant]

REACTIONS (2)
  - BLOOD GLUCOSE DECREASED [None]
  - PAIN IN EXTREMITY [None]
